FAERS Safety Report 7398998-5 (Version None)
Quarter: 2011Q2

REPORT INFORMATION
  Report Type: 
  Country: None (occurrence: None)
  Receive Date: 20110407
  Receipt Date: 20110330
  Transmission Date: 20111010
  Serious: Yes (Hospitalization, Other)
  Sender: FDA-Public Use
  Company Number: US-ELI_LILLY_AND_COMPANY-US201103008553

PATIENT
  Sex: Female

DRUGS (2)
  1. HUMALOG [Suspect]
  2. LANTUS [Concomitant]

REACTIONS (5)
  - MALAISE [None]
  - BLOOD GLUCOSE DECREASED [None]
  - HOSPITALISATION [None]
  - BLINDNESS [None]
  - BLOOD GLUCOSE INCREASED [None]
